FAERS Safety Report 5272895-3 (Version None)
Quarter: 2007Q1

REPORT INFORMATION
  Report Type: 
  Country: None (occurrence: None)
  Receive Date: 20070322
  Receipt Date: 20070313
  Transmission Date: 20070707
  Serious: Yes (Other)
  Sender: FDA-Public Use
  Company Number: 2007AP01566

PATIENT
  Age: 30 Year
  Sex: Male

DRUGS (1)
  1. SEROQUEL [Suspect]
     Route: 048
     Dates: start: 20050101, end: 20070309

REACTIONS (2)
  - BLOOD GLUCOSE INCREASED [None]
  - DRUG WITHDRAWAL SYNDROME [None]
